FAERS Safety Report 4830966-7 (Version None)
Quarter: 2005Q4

REPORT INFORMATION
  Report Type: 
  Country: None (occurrence: None)
  Receive Date: 20051114
  Receipt Date: 20051027
  Transmission Date: 20060501
  Serious: Yes (Disabling)
  Sender: FDA-Public Use
  Company Number: 2005-01949

PATIENT
  Age: 73 Year
  Sex: Female
  Weight: 41 kg

DRUGS (2)
  1. VELCADE [Suspect]
     Indication: MULTIPLE MYELOMA
     Dosage: 1.50 MG, INTRAVENOUS
     Route: 042
     Dates: start: 20050607, end: 20051006
  2. DEXAMETHASONE [Concomitant]

REACTIONS (5)
  - CEREBROVASCULAR DISORDER [None]
  - COLOUR BLINDNESS [None]
  - MICROANGIOPATHY [None]
  - VISION BLURRED [None]
  - VISUAL DISTURBANCE [None]
